FAERS Safety Report 4526980-1 (Version None)
Quarter: 2004Q4

REPORT INFORMATION
  Report Type: 
  Country: None (occurrence: None)
  Receive Date: 20041214
  Receipt Date: 20040930
  Transmission Date: 20050328
  Serious: Yes (Life-Threatening, Hospitalization)
  Sender: FDA-Public Use
  Company Number: US-MERCK-0410USA00055

PATIENT
  Age: 65 Year
  Sex: Male

DRUGS (17)
  1. VIOXX [Suspect]
     Indication: ARTHRITIS
     Route: 048
     Dates: start: 20040215, end: 20040610
  2. HUMALOG [Concomitant]
     Route: 065
  3. LANTUS [Concomitant]
     Route: 065
  4. SPIRONOLACTONE [Concomitant]
     Route: 065
  5. TERAZOSIN HYDROCHLORIDE [Concomitant]
     Route: 065
  6. VERAPAMIL [Concomitant]
     Route: 065
  7. TRICOR [Concomitant]
     Route: 065
  8. LIPITOR [Concomitant]
     Route: 065
  9. NORVASC [Concomitant]
     Route: 065
  10. GLUCOSAMINE [Concomitant]
     Route: 065
  11. ASPIRIN [Concomitant]
     Route: 065
  12. CITRACAL [Concomitant]
     Route: 065
  13. VITAMIN E [Concomitant]
     Route: 065
  14. VITAMINS (UNSPECIFIED) [Concomitant]
     Route: 065
  15. ALDACTAZIDE [Concomitant]
     Route: 065
  16. NEURONTIN [Concomitant]
     Route: 065
  17. METHADONE HYDROCHLORIDE [Concomitant]
     Route: 065

REACTIONS (9)
  - BRAIN STEM INFARCTION [None]
  - CEREBROVASCULAR ACCIDENT [None]
  - CHEST WALL PAIN [None]
  - DIZZINESS [None]
  - GASTRITIS [None]
  - INTERCOSTAL NEURALGIA [None]
  - OEDEMA [None]
  - PAIN [None]
  - RADICULAR SYNDROME [None]
